FAERS Safety Report 5082759-6 (Version None)
Quarter: 2006Q3

REPORT INFORMATION
  Report Type: 
  Country: None (occurrence: None)
  Receive Date: 20060720
  Receipt Date: 20060216
  Transmission Date: 20061208
  Serious: Yes (Other)
  Sender: FDA-Public Use
  Company Number: 2006025641

PATIENT
  Age: 38 Year
  Sex: Male
  Weight: 86.1834 kg

DRUGS (2)
  1. CELEBREX [Suspect]
     Indication: ARTHRITIS
     Dosage: 1 CAPSULE (1 IN 1 D)
     Dates: start: 20060101, end: 20060101
  2. ALEVE [Concomitant]

REACTIONS (1)
  - MYALGIA [None]
